FAERS Safety Report 8345761-4 (Version None)
Quarter: 2012Q2

REPORT INFORMATION
  Report Type: 
  Country: None (occurrence: None)
  Receive Date: 20120508
  Receipt Date: 20120425
  Transmission Date: 20120825
  Serious: Yes (Other)
  Sender: FDA-Public Use
  Company Number: DE-ELI_LILLY_AND_COMPANY-DE201204008886

PATIENT
  Sex: Female

DRUGS (4)
  1. FORTEO [Suspect]
     Indication: OSTEOPOROSIS
     Dosage: UNK, QD
     Route: 058
     Dates: start: 20120328
  2. FUROSEMIDE [Concomitant]
     Indication: DIURETIC THERAPY
     Dosage: UNK
     Dates: start: 20120401
  3. ASPIRIN [Concomitant]
     Indication: CARDIAC DISORDER
  4. BETA BLOCKING AGENTS [Concomitant]

REACTIONS (4)
  - PELVIC PAIN [None]
  - POSTURE ABNORMAL [None]
  - SPINAL FRACTURE [None]
  - OEDEMA PERIPHERAL [None]
